FAERS Safety Report 9701321 (Version 1)
Quarter: 2013Q4

REPORT INFORMATION
  Report Type: Spontaneous
  Country: US (occurrence: US)
  Receive Date: 20131121
  Receipt Date: 20131121
  Transmission Date: 20140711
  Serious: No
  Sender: FDA-Public Use
  Company Number: US-GILEAD-2008-0016379

PATIENT
  Sex: Male
  Weight: 99.79 kg

DRUGS (20)
  1. LETAIRIS [Suspect]
     Indication: PULMONARY ARTERIAL HYPERTENSION
     Route: 048
     Dates: start: 20080430
  2. LASIX [Concomitant]
     Route: 048
  3. VIAGRA [Concomitant]
     Route: 048
  4. VICODIN [Concomitant]
     Route: 048
  5. METOPROLOL [Concomitant]
     Route: 048
  6. LISINOPRIL [Concomitant]
     Route: 048
  7. SIMVASTATIN [Concomitant]
     Dosage: AT NIGHT
     Route: 048
  8. GLIPIZIDE [Concomitant]
     Route: 048
  9. METFORMIN [Concomitant]
     Route: 048
  10. FLOMAX [Concomitant]
     Route: 048
  11. SPIRIVA [Concomitant]
     Route: 055
  12. ASPIRIN [Concomitant]
     Route: 048
  13. POTASSIUM [Concomitant]
     Route: 048
  14. ALBUTEROL [Concomitant]
     Route: 055
  15. ADVAIR [Concomitant]
     Route: 055
  16. FLUNISOLIDE [Concomitant]
     Dosage: AT NIGHT
     Route: 055
  17. PLAVIX [Concomitant]
     Route: 048
  18. OMEPRAZOLE [Concomitant]
     Route: 048
  19. VITAMIN B [Concomitant]
     Route: 048
  20. VITAMIN C [Concomitant]
     Route: 048

REACTIONS (1)
  - Dyspnoea [Unknown]
